FAERS Safety Report 8789747 (Version 2)
Quarter: 2012Q4

REPORT INFORMATION
  Report Type: Spontaneous
  Country: AU (occurrence: None)
  Receive Date: 20120906
  Receipt Date: 20121010
  Transmission Date: 20130627
  Serious: Yes (Hospitalization)
  Sender: FDA-Public Use
  Company Number: 2012AP002728

PATIENT
  Age: 41 Year
  Sex: Male

DRUGS (3)
  1. GABAPENTIN [Suspect]
     Indication: EPILEPSY
     Route: 048
  2. GABAPENTIN [Suspect]
     Indication: SEIZURE
     Route: 048
  3. SODIUM VALPROATE [Concomitant]

REACTIONS (4)
  - Amnesia [None]
  - Convulsion [None]
  - Disturbance in attention [None]
  - Drug ineffective [None]
